FAERS Safety Report 13973713 (Version 7)
Quarter: 2018Q2

REPORT INFORMATION
  Report Type: Spontaneous
  Country: IT (occurrence: IT)
  Receive Date: 20170915
  Receipt Date: 20180517
  Transmission Date: 20180711
  Serious: Yes (Hospitalization, Other)
  Sender: FDA-Public Use
  Company Number: IT-PFIZER INC-2017366317

PATIENT
  Age: 33 Year
  Sex: Female

DRUGS (6)
  1. LORAZEPAM. [Suspect]
     Active Substance: LORAZEPAM
     Dosage: UNK
     Route: 048
  2. AUGMENTIN [Interacting]
     Active Substance: AMOXICILLIN\CLAVULANATE POTASSIUM
     Dosage: UNK
     Route: 048
     Dates: start: 201707
  3. CARBOLITHIUM [Interacting]
     Active Substance: LITHIUM CARBONATE
     Dosage: 1500 MG, TOTAL
     Route: 048
  4. TACHIDOL [Interacting]
     Active Substance: ACETAMINOPHEN\CODEINE PHOSPHATE
     Dosage: UNK
     Route: 048
     Dates: start: 201707
  5. FLUOXETINE [Interacting]
     Active Substance: FLUOXETINE HYDROCHLORIDE
     Dosage: UNK
     Route: 048
  6. SEROQUEL [Interacting]
     Active Substance: QUETIAPINE FUMARATE
     Dosage: 1500 MG, TOTAL
     Route: 048

REACTIONS (8)
  - Protein C increased [Recovering/Resolving]
  - Induced abortion failed [Recovering/Resolving]
  - Pelvic pain [Recovering/Resolving]
  - Alcohol interaction [Recovering/Resolving]
  - Pyrexia [Recovering/Resolving]
  - Drug abuse [Recovering/Resolving]
  - Overdose [Unknown]
  - Leukocytosis [Recovering/Resolving]

NARRATIVE: CASE EVENT DATE: 20170713
